FAERS Safety Report 4640045-X (Version None)
Quarter: 2005Q2

REPORT INFORMATION
  Report Type: 
  Country: None (occurrence: None)
  Receive Date: 20050328
  Receipt Date: 20050103
  Transmission Date: 20051028
  Serious: No
  Sender: FDA-Public Use
  Company Number: USA050187314

PATIENT
  Age: 50 Year
  Sex: Female

DRUGS (6)
  1. CYMBALTA [Suspect]
     Indication: DEPRESSION
     Dosage: 60 MG/DAY
  2. STRATTERA [Suspect]
     Indication: DEPRESSION
     Dosage: 60 MG DAY
  3. LEXAPRO [Concomitant]
  4. BENZYLHYDROCHLOROTHIAZIDE [Concomitant]
  5. ALLEGRA D 24 HOUR [Concomitant]
  6. LISINOPRIL [Concomitant]

REACTIONS (4)
  - CRYING [None]
  - DEPRESSED MOOD [None]
  - FEELING ABNORMAL [None]
  - HYPERSOMNIA [None]
